FAERS Safety Report 24415738 (Version 1)
Quarter: 2024Q4

REPORT INFORMATION
  Report Type: Spontaneous
  Country: US (occurrence: None)
  Receive Date: 20241008
  Receipt Date: 20241008
  Transmission Date: 20250115
  Serious: Yes (Other)
  Sender: Public
  Company Number: None

PATIENT
  Age: 22 Year
  Sex: Female

DRUGS (1)
  1. AMBRISENTAN [Suspect]
     Active Substance: AMBRISENTAN
     Indication: Pulmonary arterial hypertension
     Dosage: FREQUENCY : DAILY;?
     Route: 048
     Dates: start: 20240607, end: 20241008

REACTIONS (4)
  - Nasal congestion [None]
  - Peripheral swelling [None]
  - Pain [None]
  - Gait disturbance [None]

NARRATIVE: CASE EVENT DATE: 20241008
